FAERS Safety Report 19712668 (Version 2)
Quarter: 2021Q3

REPORT INFORMATION
  Report Type: Spontaneous
  Country: BR (occurrence: BR)
  Receive Date: 20210816
  Receipt Date: 20210830
  Transmission Date: 20211014
  Serious: Yes (Death)
  Sender: FDA-Public Use
  Company Number: BR-TEIKOKU PHARMA USA-TPU2021-00806

PATIENT
  Age: 89 Year
  Sex: Female

DRUGS (5)
  1. OMEPRAZOL [OMEPRAZOLE] [Concomitant]
     Active Substance: OMEPRAZOLE
  2. TOPERMA [Suspect]
     Active Substance: LIDOCAINE
     Indication: FEMUR FRACTURE
     Route: 061
     Dates: start: 2017, end: 2017
  3. TOPERMA [Suspect]
     Active Substance: LIDOCAINE
     Route: 061
     Dates: start: 2018
  4. ATENOLOL. [Concomitant]
     Active Substance: ATENOLOL
  5. VITAMINS NOS [Concomitant]
     Active Substance: VITAMINS

REACTIONS (1)
  - Malignant neoplasm progression [Fatal]
